FAERS Safety Report 5420982-9 (Version None)
Quarter: 2007Q3

REPORT INFORMATION
  Report Type: 
  Country: None (occurrence: None)
  Receive Date: 20070817
  Receipt Date: 20070809
  Transmission Date: 20080115
  Serious: Yes (Hospitalization)
  Sender: FDA-Public Use
  Company Number: SP01518

PATIENT
  Age: 55 Year
  Sex: Female

DRUGS (2)
  1. OSMOPREP [Suspect]
     Indication: COLONOSCOPY
     Dosage: ORAL
     Route: 048
     Dates: start: 20070301, end: 20070301
  2. ACE INHIBITOR [Concomitant]

REACTIONS (3)
  - NEPHROCALCINOSIS [None]
  - PROCEDURAL PAIN [None]
  - RENAL IMPAIRMENT [None]
